FAERS Safety Report 8510424-9 (Version None)
Quarter: 2012Q3

REPORT INFORMATION
  Report Type: 
  Country: None (occurrence: None)
  Receive Date: 20120714
  Receipt Date: 20120711
  Transmission Date: 20120928
  Serious: Yes (Life-Threatening, Hospitalization)
  Sender: FDA-Public Use
  Company Number: PHHY2012DE059926

PATIENT
  Age: 61 Year
  Sex: Male

DRUGS (6)
  1. SANDIMMUNE [Suspect]
     Indication: ARTHRITIS
  2. ENBREL [Suspect]
     Indication: ARTHRITIS
  3. SANDIMMUNE [Suspect]
     Indication: PSORIASIS
     Dosage: 300 MG, PER DAY
     Route: 048
     Dates: start: 20080101, end: 20080601
  4. METHOTREXATE [Suspect]
     Indication: PSORIASIS
     Dosage: 15 MG, QW
     Route: 048
     Dates: start: 20050601, end: 20051201
  5. ENBREL [Suspect]
     Indication: PSORIASIS
     Dosage: 50 MG, QW
     Route: 058
     Dates: start: 20100301, end: 20120401
  6. METHOTREXATE [Suspect]
     Indication: ARTHRITIS

REACTIONS (1)
  - BLADDER CANCER [None]
